FAERS Safety Report 25084795 (Version 1)
Quarter: 2025Q1

REPORT INFORMATION
  Report Type: Spontaneous
  Country: JP (occurrence: JP)
  Receive Date: 20250317
  Receipt Date: 20250317
  Transmission Date: 20250409
  Serious: Yes (Death, Other)
  Sender: BOEHRINGER INGELHEIM
  Company Number: JP-BoehringerIngelheim-2025-BI-015008

PATIENT
  Age: 71 Year
  Sex: Male
  Weight: 60.3 kg

DRUGS (1)
  1. NINTEDANIB [Suspect]
     Active Substance: NINTEDANIB
     Indication: Idiopathic pulmonary fibrosis

REACTIONS (5)
  - Interstitial lung disease [Fatal]
  - Respiratory failure [Fatal]
  - Idiopathic pulmonary fibrosis [Recovered/Resolved]
  - Weight decreased [Recovering/Resolving]
  - Decreased appetite [Recovered/Resolved]

NARRATIVE: CASE EVENT DATE: 20230701
